FAERS Safety Report 6145190-8 (Version None)
Quarter: 2009Q2

REPORT INFORMATION
  Report Type: 
  Country: None (occurrence: None)
  Receive Date: 20090406
  Receipt Date: 20090331
  Transmission Date: 20091009
  Serious: Yes (Other)
  Sender: FDA-Public Use
  Company Number: US-JNJFOC-20090400352

PATIENT
  Age: 3 Year
  Sex: Male
  Weight: 22.68 kg

DRUGS (2)
  1. TOPAMAX [Suspect]
     Route: 048
  2. TOPAMAX [Suspect]
     Indication: CONVULSION
     Route: 048

REACTIONS (3)
  - BLINDNESS TRANSIENT [None]
  - DYSPHASIA [None]
  - STUPOR [None]
